FAERS Safety Report 9694611 (Version 1)
Quarter: 2013Q4

REPORT INFORMATION
  Report Type: Spontaneous
  Country: RU (occurrence: RU)
  Receive Date: 20131118
  Receipt Date: 20131118
  Transmission Date: 20140711
  Serious: Yes (Hospitalization)
  Sender: FDA-Public Use
  Company Number: RU-ABBVIE-13P-251-1158341-00

PATIENT
  Age: 43 Year
  Sex: Female
  Weight: 62 kg

DRUGS (5)
  1. DEPAKINE CHRONO [Suspect]
     Indication: BIPOLAR I DISORDER
     Route: 048
     Dates: start: 20130718, end: 20130729
  2. DEPAKINE CHRONO [Suspect]
     Route: 048
     Dates: start: 20130730
  3. INVESTIGATIONAL DRUG [Suspect]
     Indication: BIPOLAR I DISORDER
     Route: 048
     Dates: start: 20130724, end: 20130729
  4. INVESTIGATIONAL DRUG [Suspect]
     Route: 048
     Dates: start: 20130721, end: 20130723
  5. INVESTIGATIONAL DRUG [Suspect]
     Route: 048
     Dates: start: 20130718, end: 20130720

REACTIONS (8)
  - Mania [Recovered/Resolved]
  - Speech disorder [Not Recovered/Not Resolved]
  - Flight of ideas [Not Recovered/Not Resolved]
  - Anosognosia [Not Recovered/Not Resolved]
  - Irritability [Not Recovered/Not Resolved]
  - Language disorder [Not Recovered/Not Resolved]
  - Aggression [Not Recovered/Not Resolved]
  - Psychomotor hyperactivity [Not Recovered/Not Resolved]
